FAERS Safety Report 8226453-9 (Version None)
Quarter: 2012Q1

REPORT INFORMATION
  Report Type: 
  Country: None (occurrence: None)
  Receive Date: 20120322
  Receipt Date: 20120309
  Transmission Date: 20120608
  Serious: Yes (Other)
  Sender: FDA-Public Use
  Company Number: CL-RANBAXY-2012RR-52309

PATIENT
  Age: 49 Year
  Sex: Male

DRUGS (11)
  1. LAMOTRIGINE [Concomitant]
     Indication: PANIC ATTACK
  2. TOPIRAMATE [Concomitant]
     Indication: EATING DISORDER
     Dosage: 150 MG/DAY
     Route: 065
  3. ZOLPIDEM [Suspect]
     Dosage: UNK
     Route: 065
  4. LAMOTRIGINE [Concomitant]
     Indication: BIPOLAR DISORDER
     Dosage: 200 MG, UNK
     Route: 065
  5. ZOLPIDEM [Suspect]
     Indication: BIPOLAR DISORDER
     Dosage: 10 MG, QD
     Route: 065
  6. ZOLPIDEM [Suspect]
     Indication: PANIC ATTACK
  7. CARVEDILOL [Concomitant]
     Indication: HYPERTENSION
     Dosage: 25 MG/DAY
     Route: 065
  8. ZOLPIDEM [Suspect]
  9. CLOPIDOGREL [Concomitant]
     Indication: CORONARY ARTERY DISEASE
     Dosage: 75 MG/DAY
     Route: 065
  10. CLONAZEPAM [Concomitant]
     Indication: BIPOLAR DISORDER
     Dosage: 2.5 MG/DAY
     Route: 065
  11. CLONAZEPAM [Concomitant]
     Indication: PANIC ATTACK

REACTIONS (2)
  - WEIGHT INCREASED [None]
  - SLEEP DISORDER [None]
